FAERS Safety Report 7043291-3 (Version None)
Quarter: 2010Q4

REPORT INFORMATION
  Report Type: 
  Country: None (occurrence: None)
  Receive Date: 20101013
  Receipt Date: 20090904
  Transmission Date: 20110411
  Serious: No
  Sender: FDA-Public Use
  Company Number: US-ASTRAZENECA-2009SE11907

PATIENT
  Age: 81 Year
  Sex: Female

DRUGS (4)
  1. SYMBICORT [Suspect]
     Indication: CHRONIC OBSTRUCTIVE PULMONARY DISEASE
     Dosage: 320MCG
     Route: 055
     Dates: start: 20090701, end: 20090903
  2. SYMBICORT [Suspect]
     Dosage: 640MCG
     Route: 055
     Dates: start: 20090903
  3. ZESTRIL [Concomitant]
     Route: 048
  4. SPIRIVA [Concomitant]

REACTIONS (3)
  - DRUG INEFFECTIVE [None]
  - DYSPNOEA [None]
  - FATIGUE [None]
